FAERS Safety Report 20407148 (Version 4)
Quarter: 2022Q2

REPORT INFORMATION
  Report Type: Spontaneous
  Country: CA (occurrence: CA)
  Receive Date: 20220131
  Receipt Date: 20220422
  Transmission Date: 20220720
  Serious: Yes (Other)
  Sender: FDA-Public Use
  Company Number: CA-LUPIN PHARMACEUTICALS INC.-2022-00919

PATIENT
  Age: 41 Year
  Sex: Female

DRUGS (5)
  1. BETAMETHASONE [Suspect]
     Active Substance: BETAMETHASONE
     Indication: Maternal therapy to enhance foetal lung maturity
     Dosage: 12 MG EVERY 12 HOURS
     Route: 030
     Dates: start: 20170924, end: 20170925
  2. AMPICILLIN [Suspect]
     Active Substance: AMPICILLIN
     Indication: Drug therapy
     Dosage: 2 GRAM, QID
     Route: 042
     Dates: start: 20170924
  3. AMPICILLIN [Suspect]
     Active Substance: AMPICILLIN
     Dosage: 250 MG, QID
     Route: 048
     Dates: end: 20171001
  4. ERYTHROMYCIN [Suspect]
     Active Substance: ERYTHROMYCIN
     Indication: Drug therapy
     Dosage: 250 MG, QID
     Route: 042
     Dates: start: 20170924
  5. ERYTHROMYCIN [Suspect]
     Active Substance: ERYTHROMYCIN
     Dosage: 250 MG, QID
     Route: 048
     Dates: end: 20171001

REACTIONS (3)
  - Premature delivery [Unknown]
  - Amniotic cavity infection [Unknown]
  - Exposure during pregnancy [Unknown]
